FAERS Safety Report 14640212 (Version 9)
Quarter: 2018Q2

REPORT INFORMATION
  Report Type: Spontaneous
  Country: DE (occurrence: DE)
  Receive Date: 20180315
  Receipt Date: 20180622
  Transmission Date: 20180711
  Serious: Yes (Hospitalization, Other)
  Sender: FDA-Public Use
  Company Number: DE-SUN PHARMACEUTICAL INDUSTRIES LTD-2018RR-166367

PATIENT
  Age: 62 Year
  Sex: Male
  Weight: 70 kg

DRUGS (17)
  1. OXALIPLATIN. [Suspect]
     Active Substance: OXALIPLATIN
     Dosage: 123.76 MG OR 122 MG
     Route: 042
     Dates: start: 20160509, end: 20160815
  2. 5-FLUOROURACIL [Suspect]
     Active Substance: FLUOROURACIL
     Indication: COLORECTAL CANCER
     Dosage: UNK
     Route: 040
     Dates: start: 20151228, end: 20161107
  3. 5-FLUOROURACIL [Suspect]
     Active Substance: FLUOROURACIL
     Dosage: ()
     Route: 040
     Dates: start: 20151228, end: 20160511
  4. AVASTIN [Suspect]
     Active Substance: BEVACIZUMAB
     Dosage: 350 MG, UNK
     Route: 042
     Dates: start: 20151228
  5. DEXAMETHASON [Concomitant]
     Active Substance: DEXAMETHASONE
     Indication: NAUSEA
     Dosage: BEFORE CHEMOTHERAPY
     Route: 042
     Dates: start: 20151228
  6. CALCIUM FOLINAT [Suspect]
     Active Substance: LEUCOVORIN CALCIUM
     Indication: COLORECTAL CANCER
     Dosage: 362-364 MG
     Route: 042
     Dates: start: 20151228, end: 20161107
  7. IRINOTECAN [Suspect]
     Active Substance: IRINOTECAN
     Indication: COLORECTAL CANCER
     Dosage: 326 MG
     Route: 042
     Dates: start: 20161107
  8. IRINOTECAN [Suspect]
     Active Substance: IRINOTECAN
     Indication: OFF LABEL USE
     Dosage: 298.65 MG
     Route: 042
     Dates: start: 20151228, end: 20161107
  9. AVASTIN [Suspect]
     Active Substance: BEVACIZUMAB
     Indication: COLORECTAL CANCER METASTATIC
     Dosage: 355 MG, UNK
     Route: 042
     Dates: start: 20160404, end: 20161024
  10. ONDANSETRON [Concomitant]
     Active Substance: ONDANSETRON
     Indication: NAUSEA
     Route: 042
     Dates: start: 20151228
  11. 5-FLUOROURACIL [Suspect]
     Active Substance: FLUOROURACIL
     Dosage: 724 MG, UNK
     Route: 040
     Dates: start: 20160829, end: 20161107
  12. OXALIPLATIN. [Suspect]
     Active Substance: OXALIPLATIN
     Dosage: 153.85 MG, UNK
     Route: 042
     Dates: start: 20151228, end: 20160509
  13. AVASTIN [Suspect]
     Active Substance: BEVACIZUMAB
     Dosage: 350 MG, UNK
     Route: 042
     Dates: start: 20161024
  14. OXALIPLATIN. [Suspect]
     Active Substance: OXALIPLATIN
     Indication: COLORECTAL CANCER
     Dosage: UNK
     Route: 042
     Dates: start: 20160815
  15. BISOPROLOL [Concomitant]
     Active Substance: BISOPROLOL
     Indication: HYPERTENSION
     Dosage: 5 MG, UNK
     Route: 048
  16. PANTOPRAZOL [Concomitant]
     Active Substance: PANTOPRAZOLE SODIUM
     Indication: PRODUCT USED FOR UNKNOWN INDICATION
     Dosage: 40 MG, UNK
     Route: 048
     Dates: start: 20160619
  17. PEGFILGRASTIM [Concomitant]
     Active Substance: PEGFILGRASTIM
     Indication: NEUTROPENIA
     Dosage: 6 MG, UNK
     Route: 042
     Dates: start: 20151228

REACTIONS (3)
  - Liver abscess [Recovered/Resolved]
  - Perihepatic abscess [Recovered/Resolved]
  - Off label use [Unknown]

NARRATIVE: CASE EVENT DATE: 20160622
